FAERS Safety Report 22185935 (Version 1)
Quarter: 2023Q2

REPORT INFORMATION
  Report Type: Spontaneous
  Country: US (occurrence: US)
  Receive Date: 20230407
  Receipt Date: 20230407
  Transmission Date: 20230722
  Serious: No
  Sender: FDA-Public Use
  Company Number: US-JAZZ PHARMACEUTICALS-2023-US-003156

PATIENT
  Sex: Female

DRUGS (2)
  1. RYLAZE [Suspect]
     Active Substance: ASPARAGINASE ERWINIA CHRYSANTHEMI (RECOMBINANT)-RYWN
     Indication: Acute lymphocytic leukaemia
     Dosage: UNK
  2. RYLAZE [Suspect]
     Active Substance: ASPARAGINASE ERWINIA CHRYSANTHEMI (RECOMBINANT)-RYWN
     Indication: Non-Hodgkin^s lymphoma

REACTIONS (1)
  - Hypersensitivity [Recovered/Resolved]
